FAERS Safety Report 9109414 (Version 1)
Quarter: 2013Q1

REPORT INFORMATION
  Report Type: Spontaneous
  Country: US (occurrence: US)
  Receive Date: 20130222
  Receipt Date: 20130222
  Transmission Date: 20140127
  Serious: Yes (Other)
  Sender: FDA-Public Use
  Company Number: US-BAYER-2013-023293

PATIENT
  Age: 80 Year
  Sex: Female
  Weight: 66 kg

DRUGS (2)
  1. ALEVE GELCAP [Suspect]
     Indication: PAIN
     Dosage: 1 UNK, ONCE
     Route: 048
     Dates: start: 201302, end: 201302
  2. ARMOUR THYROID [Concomitant]

REACTIONS (1)
  - Conjunctival haemorrhage [Recovered/Resolved]
